FAERS Safety Report 7473173-4 (Version None)
Quarter: 2011Q2

REPORT INFORMATION
  Report Type: 
  Country: None (occurrence: None)
  Receive Date: 20110511
  Receipt Date: 20110429
  Transmission Date: 20111010
  Serious: Yes (Death, Hospitalization)
  Sender: FDA-Public Use
  Company Number: A0889994A

PATIENT
  Sex: Female

DRUGS (1)
  1. AVANDIA [Suspect]
     Dosage: 8MG PER DAY
     Route: 048
     Dates: end: 20030509

REACTIONS (5)
  - SUPRAVENTRICULAR TACHYCARDIA [None]
  - ISCHAEMIC CARDIOMYOPATHY [None]
  - CARDIAC ARREST [None]
  - DEATH [None]
  - CARDIAC FAILURE CONGESTIVE [None]
